FAERS Safety Report 21147219 (Version 1)
Quarter: 2022Q3

REPORT INFORMATION
  Report Type: Spontaneous
  Country: US (occurrence: US)
  Receive Date: 20220729
  Receipt Date: 20220729
  Transmission Date: 20221027
  Serious: Yes (Other)
  Sender: FDA-Public Use
  Company Number: US-AMGEN-USASP2022125690

PATIENT

DRUGS (2)
  1. PROLIA [Suspect]
     Active Substance: DENOSUMAB
     Indication: Product used for unknown indication
     Dosage: UNK
     Route: 065
  2. XGEVA [Suspect]
     Active Substance: DENOSUMAB
     Indication: Product used for unknown indication
     Dosage: UNK
     Route: 065

REACTIONS (10)
  - Breast cancer [Unknown]
  - Neoplasm malignant [Unknown]
  - Spinal fracture [Unknown]
  - Thoracic vertebral fracture [Unknown]
  - Fracture [Unknown]
  - Osteoporosis [Unknown]
  - Osteopenia [Unknown]
  - Blood calcium abnormal [Unknown]
  - Pain [Unknown]
  - Prostatic specific antigen abnormal [Unknown]
